FAERS Safety Report 7749731-6 (Version None)
Quarter: 2011Q3

REPORT INFORMATION
  Report Type: 
  Country: None (occurrence: None)
  Receive Date: 20110914
  Receipt Date: 20110905
  Transmission Date: 20111222
  Serious: Yes (Other)
  Sender: FDA-Public Use
  Company Number: GB-ROCHE-800922

PATIENT
  Age: 53 Year
  Sex: Female

DRUGS (2)
  1. IBANDRONATE SODIUM [Suspect]
     Route: 065
     Dates: start: 20070501
  2. BONEFOS [Suspect]
     Route: 048
     Dates: end: 20070501

REACTIONS (2)
  - OROANTRAL FISTULA [None]
  - OSTEONECROSIS [None]
